FAERS Safety Report 19071802 (Version 2)
Quarter: 2021Q1

REPORT INFORMATION
  Report Type: Spontaneous
  Country: DE (occurrence: DE)
  Receive Date: 20210330
  Receipt Date: 20210331
  Transmission Date: 20210420
  Serious: Yes (Death, Hospitalization, Other)
  Sender: FDA-Public Use
  Company Number: DE-TEVA-2020-DE-1850047

PATIENT
  Age: 75 Year
  Sex: Female

DRUGS (12)
  1. TORASEMID [Concomitant]
     Active Substance: TORSEMIDE
  2. HCT [Concomitant]
     Active Substance: HYDROCHLOROTHIAZIDE
  3. NORADRENALIN [Concomitant]
     Active Substance: NOREPINEPHRINE\NOREPINEPHRINE BITARTRATE
  4. METFORMIN [Suspect]
     Active Substance: METFORMIN HYDROCHLORIDE
     Indication: TYPE 2 DIABETES MELLITUS
  5. BROMAZEPAM [Concomitant]
     Active Substance: BROMAZEPAM
  6. CANDESARTAN. [Concomitant]
     Active Substance: CANDESARTAN
  7. PROPOFOL. [Concomitant]
     Active Substance: PROPOFOL
  8. SUFENTANYL [Concomitant]
     Active Substance: SUFENTANIL
  9. METHIONIN [Concomitant]
     Active Substance: METHIONINE
  10. METFORMIN [Suspect]
     Active Substance: METFORMIN HYDROCHLORIDE
     Indication: TYPE 2 DIABETES MELLITUS
     Dosage: 1000 MILLIGRAM DAILY; 1?0?1
     Route: 048
  11. ROSUVASTATIN. [Concomitant]
     Active Substance: ROSUVASTATIN
  12. ELIQUIS [Concomitant]
     Active Substance: APIXABAN

REACTIONS (1)
  - Lactic acidosis [Fatal]

NARRATIVE: CASE EVENT DATE: 20201015
